FAERS Safety Report 9264816 (Version 1)
Quarter: 2013Q2

REPORT INFORMATION
  Report Type: Spontaneous
  Country: US (occurrence: None)
  Receive Date: 20130426
  Receipt Date: 20130426
  Transmission Date: 20140414
  Serious: Yes (Other)
  Sender: FDA-Public Use
  Company Number: AUR-APL-2013-03302

PATIENT
  Age: 68 Year
  Sex: Male
  Weight: 83 kg

DRUGS (3)
  1. METFORMIN (METFORMIN) [Suspect]
     Indication: DIABETES MELLITUS
     Dosage: 500 MG 2X IN A.M./500 MG 1X P.M.
     Dates: start: 2008
  2. GLUCOTROL XL [Suspect]
     Indication: DIABETES MELLITUS
     Dates: start: 2003
  3. LIPITOR (ATORVASTATIN CALCIUM) [Concomitant]

REACTIONS (3)
  - Photopsia [None]
  - Blood glucose decreased [None]
  - Presyncope [None]
